FAERS Safety Report 15982240 (Version 2)
Quarter: 2021Q2

REPORT INFORMATION
  Report Type: Spontaneous
  Country: FR (occurrence: FR)
  Receive Date: 20190219
  Receipt Date: 20210405
  Transmission Date: 20210716
  Serious: Yes (Hospitalization, Other)
  Sender: FDA-Public Use
  Company Number: FR-PFIZER INC-2019068648

PATIENT
  Sex: Male

DRUGS (6)
  1. RITUXIMAB. [Suspect]
     Active Substance: RITUXIMAB
     Indication: LYMPHOMA
     Dosage: UNK
     Dates: start: 20190109, end: 20190109
  2. DOXORUBICIN HCL [Suspect]
     Active Substance: DOXORUBICIN HYDROCHLORIDE
     Indication: LYMPHOMA
     Dosage: UNK
     Dates: start: 20190109, end: 20190109
  3. ONCOVIN [Suspect]
     Active Substance: VINCRISTINE SULFATE
     Indication: LYMPHOMA
     Dosage: UNK
     Dates: start: 20190109, end: 20190109
  4. GRANOCYTE [Suspect]
     Active Substance: LENOGRASTIM
     Dosage: 5 DF, 1X/DAY (5 INJECTIONS)
     Route: 065
     Dates: start: 201901
  5. CYCLOPHOSPHAMIDE. [Suspect]
     Active Substance: CYCLOPHOSPHAMIDE
     Indication: LYMPHOMA
     Dosage: UNK
     Dates: start: 20190109, end: 20190109
  6. PREDNISONE. [Suspect]
     Active Substance: PREDNISONE
     Indication: LYMPHOMA
     Dosage: UNK
     Dates: start: 20190109, end: 20190109

REACTIONS (3)
  - Arthralgia [Unknown]
  - Pulmonary embolism [Unknown]
  - Dyspnoea [Unknown]

NARRATIVE: CASE EVENT DATE: 2019
